FAERS Safety Report 4869894-X (Version None)
Quarter: 2005Q4

REPORT INFORMATION
  Report Type: 
  Country: None (occurrence: None)
  Receive Date: 20051230
  Receipt Date: 20050204
  Transmission Date: 20060501
  Serious: Yes (Hospitalization, Other)
  Sender: FDA-Public Use
  Company Number: US-MERCK-0502USA00647

PATIENT
  Age: 57 Year
  Sex: Male
  Weight: 68 kg

DRUGS (13)
  1. VIOXX [Suspect]
     Indication: ARTHRITIS
     Route: 048
     Dates: start: 19990702, end: 20020606
  2. VIOXX [Suspect]
     Route: 048
     Dates: start: 19990702, end: 20020606
  3. VIOXX [Suspect]
     Indication: PSORIATIC ARTHROPATHY
     Route: 048
     Dates: start: 19990702, end: 20020606
  4. VIOXX [Suspect]
     Route: 048
     Dates: start: 19990702, end: 20020606
  5. ZITHROMAX [Concomitant]
     Route: 065
  6. CLARITIN-D [Concomitant]
     Route: 065
  7. HYDROXYZINE HYDROCHLORIDE [Concomitant]
     Indication: PSORIASIS
     Route: 065
  8. ZYRTEC [Concomitant]
     Route: 065
  9. MONODOX [Concomitant]
     Route: 065
  10. ULTRAVATE [Concomitant]
     Indication: PSORIASIS
     Route: 065
  11. TEMOVATE [Concomitant]
     Indication: PSORIASIS
     Route: 065
  12. ZONALON [Concomitant]
     Indication: PSORIASIS
     Route: 065
  13. TAZORAC [Concomitant]
     Indication: PSORIASIS
     Route: 065

REACTIONS (19)
  - ANGINA PECTORIS [None]
  - ARTERIOSCLEROSIS [None]
  - ARTHROPATHY [None]
  - BLOOD PRESSURE INCREASED [None]
  - CARDIAC DISORDER [None]
  - CHEST PAIN [None]
  - CORONARY ARTERY DISEASE [None]
  - CORONARY ARTERY OCCLUSION [None]
  - DEEP VEIN THROMBOSIS [None]
  - DIABETES MELLITUS [None]
  - HYPERLIPIDAEMIA [None]
  - LIMB INJURY [None]
  - MYOCARDIAL INFARCTION [None]
  - OSTEOARTHRITIS [None]
  - OSTEONECROSIS [None]
  - PARAESTHESIA [None]
  - SLEEP APNOEA SYNDROME [None]
  - TRANSIENT ISCHAEMIC ATTACK [None]
  - VENTRICULAR DYSFUNCTION [None]
